FAERS Safety Report 18875213 (Version 1)
Quarter: 2021Q1

REPORT INFORMATION
  Report Type: Spontaneous
  Country: US (occurrence: US)
  Receive Date: 20210211
  Receipt Date: 20210211
  Transmission Date: 20210420
  Serious: No
  Sender: FDA-Public Use
  Company Number: US-SA-2021SA040187

PATIENT
  Age: 13 Year
  Sex: Male

DRUGS (2)
  1. DUPIXENT [Suspect]
     Active Substance: DUPILUMAB
     Dosage: FREQUENCY: OTHER
     Route: 058
     Dates: start: 202010
  2. DUPIXENT [Suspect]
     Active Substance: DUPILUMAB
     Dosage: UNK

REACTIONS (1)
  - Off label use [Unknown]

NARRATIVE: CASE EVENT DATE: 20210128
